FAERS Safety Report 19484984 (Version 3)
Quarter: 2024Q2

REPORT INFORMATION
  Report Type: Report from Study
  Country: CA (occurrence: CA)
  Receive Date: 20210701
  Receipt Date: 20240408
  Transmission Date: 20240716
  Serious: Yes (Other)
  Sender: FDA-Public Use
  Company Number: CA-BIOGEN-2021BI01015439

PATIENT
  Sex: Male

DRUGS (6)
  1. DALFAMPRIDINE [Suspect]
     Active Substance: DALFAMPRIDINE
     Indication: Multiple sclerosis
     Route: 050
     Dates: start: 20210220, end: 20210520
  2. DALFAMPRIDINE [Suspect]
     Active Substance: DALFAMPRIDINE
     Route: 050
     Dates: start: 20210528, end: 20210612
  3. DALFAMPRIDINE [Suspect]
     Active Substance: DALFAMPRIDINE
     Route: 050
     Dates: start: 20210613
  4. DALFAMPRIDINE [Suspect]
     Active Substance: DALFAMPRIDINE
     Route: 050
  5. DALFAMPRIDINE [Suspect]
     Active Substance: DALFAMPRIDINE
     Route: 050
     Dates: start: 20210220
  6. PLEGRIDY [Suspect]
     Active Substance: PEGINTERFERON BETA-1A
     Indication: Relapsing-remitting multiple sclerosis
     Route: 050
     Dates: start: 20160815

REACTIONS (10)
  - Thrombosis [Recovered/Resolved with Sequelae]
  - Peripheral venous disease [Recovered/Resolved with Sequelae]
  - Underdose [Recovered/Resolved]
  - Palpitations [Unknown]
  - Chest discomfort [Unknown]
  - Blood pressure increased [Recovered/Resolved with Sequelae]
  - Oedema [Recovered/Resolved with Sequelae]
  - Dyspnoea [Unknown]
  - Insomnia [Recovered/Resolved with Sequelae]
  - Anxiety [Unknown]

NARRATIVE: CASE EVENT DATE: 20210101
